FAERS Safety Report 5777047-6 (Version None)
Quarter: 2008Q2

REPORT INFORMATION
  Report Type: 
  Country: None (occurrence: None)
  Receive Date: 20080616
  Receipt Date: 20080610
  Transmission Date: 20081010
  Serious: Yes (Death)
  Sender: FDA-Public Use
  Company Number: 2008-178904-NL

PATIENT
  Age: 57 Year
  Sex: Male

DRUGS (5)
  1. MIRTAZAPINE [Suspect]
     Indication: DEPRESSION
     Dosage: 60 MG ORAL
     Route: 048
  2. AMITRIPTYLINE HYDROCHLORIDE [Suspect]
     Indication: DEPRESSION
     Dosage: 125 MG ORAL
     Route: 048
  3. ALPRAZOLAM [Concomitant]
  4. ACETAMINOPHEN [Concomitant]
  5. FENTANYL-100 [Concomitant]

REACTIONS (6)
  - DISSEMINATED INTRAVASCULAR COAGULATION [None]
  - DRUG LEVEL INCREASED [None]
  - DRUG TOXICITY [None]
  - HEPATIC FAILURE [None]
  - HEPATIC STEATOSIS [None]
  - SEROTONIN SYNDROME [None]
